FAERS Safety Report 8885325 (Version 1)
Quarter: 2012Q4

REPORT INFORMATION
  Report Type: 
  Country: US (occurrence: US)
  Receive Date: 20121101
  Receipt Date: 20121101
  Transmission Date: 20130627
  Serious: Yes (Other)
  Sender: FDA-Public Use
  Company Number: US-PERRIGO-12US009263

PATIENT
  Sex: Female

DRUGS (2)
  1. ACETAMINOPHEN-ASPIRIN-CAFFEINE 374 [Suspect]
     Indication: HEADACHE
     Dosage: 1-2 caplets, as needed
     Route: 048
     Dates: start: 201208, end: 201210
  2. ACETAMINOPHEN-ASPIRIN-CAFFEINE 374 [Suspect]
     Dosage: UNK
     Route: 065

REACTIONS (3)
  - Foetal death [Unknown]
  - Exposure during pregnancy [Unknown]
  - Underdose [Unknown]
